FAERS Safety Report 26006544 (Version 1)
Quarter: 2025Q4

REPORT INFORMATION
  Report Type: Spontaneous
  Country: US (occurrence: US)
  Receive Date: 20251106
  Receipt Date: 20251106
  Transmission Date: 20260118
  Serious: No
  Sender: RANBAXY
  Company Number: US-MIMS-SUN-2025-USA-54546

PATIENT
  Age: 20 Year
  Sex: Female

DRUGS (1)
  1. MY CHOICE TM [Suspect]
     Active Substance: LEVONORGESTREL
     Indication: Contraceptive implant
     Dosage: UNK
     Route: 065
     Dates: start: 20250506

REACTIONS (5)
  - Vomiting [Unknown]
  - Nausea [Unknown]
  - Abdominal pain [Unknown]
  - Pain [Unknown]
  - Vaginal haemorrhage [Unknown]

NARRATIVE: CASE EVENT DATE: 20250512
